FAERS Safety Report 4688707-2 (Version None)
Quarter: 2005Q2

REPORT INFORMATION
  Report Type: 
  Country: None (occurrence: None)
  Receive Date: 20050613
  Receipt Date: 20050531
  Transmission Date: 20051028
  Serious: Yes (Hospitalization, Other)
  Sender: FDA-Public Use
  Company Number: FR-BRISTOL-MYERS SQUIBB COMPANY-12990065

PATIENT
  Age: 56 Year
  Sex: Female
  Weight: 50 kg

DRUGS (3)
  1. REYATAZ [Suspect]
     Indication: HIV INFECTION
     Route: 048
     Dates: start: 20041023
  2. ZIAGEN [Suspect]
     Indication: HIV INFECTION
     Route: 048
     Dates: start: 20041023
  3. EPIVIR [Suspect]
     Indication: HIV INFECTION
     Route: 048
     Dates: start: 20041023

REACTIONS (2)
  - BREAST CANCER [None]
  - HEADACHE [None]
